FAERS Safety Report 17054629 (Version 1)
Quarter: 2019Q4

REPORT INFORMATION
  Report Type: Report from Study
  Country: US (occurrence: US)
  Receive Date: 20191120
  Receipt Date: 20191120
  Transmission Date: 20200122
  Serious: Yes (Other)
  Sender: FDA-Public Use
  Company Number: US-GILEAD-2019-0438348

PATIENT
  Age: 30 Year
  Sex: Male

DRUGS (1)
  1. EMTRICITABINE/TENOFOVIR ALAFENAMIDE [Suspect]
     Active Substance: EMTRICITABINE\TENOFOVIR
     Indication: HIV INFECTION
     Dosage: 225 MG, QD
     Route: 048
     Dates: end: 20191117

REACTIONS (2)
  - Product use issue [Not Recovered/Not Resolved]
  - Drug use disorder [Not Recovered/Not Resolved]

NARRATIVE: CASE EVENT DATE: 20191117
